FAERS Safety Report 19942548 (Version 2)
Quarter: 2021Q4

REPORT INFORMATION
  Report Type: Spontaneous
  Country: US (occurrence: CA)
  Receive Date: 20211011
  Receipt Date: 20211029
  Transmission Date: 20220303
  Serious: Yes (Other)
  Sender: FDA-Public Use
  Company Number: US-TAKEDA-2021TUS060976

PATIENT
  Age: 90 Year
  Sex: Male

DRUGS (1)
  1. GAMMAGARD [Suspect]
     Active Substance: HUMAN IMMUNOGLOBULIN G
     Indication: Product used for unknown indication
     Dosage: 30 GRAM
     Route: 042
     Dates: start: 20200825

REACTIONS (3)
  - Acute pulmonary oedema [Unknown]
  - Pneumococcal sepsis [Unknown]
  - Febrile nonhaemolytic transfusion reaction [Unknown]

NARRATIVE: CASE EVENT DATE: 20200825
